FAERS Safety Report 8340357-2 (Version None)
Quarter: 2012Q2

REPORT INFORMATION
  Report Type: 
  Country: None (occurrence: None)
  Receive Date: 20120507
  Receipt Date: 20120425
  Transmission Date: 20120825
  Serious: Yes (Hospitalization, Other)
  Sender: FDA-Public Use
  Company Number: HR-PFIZER INC-2012105675

PATIENT
  Age: 54 Year
  Sex: Male

DRUGS (4)
  1. FLUOROURACIL [Suspect]
     Indication: TONGUE NEOPLASM MALIGNANT STAGE UNSPECIFIED
     Dosage: 1500 MG, 1X/DAY
     Route: 042
     Dates: start: 20120109, end: 20120112
  2. CISPLATIN [Suspect]
     Indication: TONGUE NEOPLASM MALIGNANT STAGE UNSPECIFIED
     Dosage: 160 MG, 1X/DAY
     Route: 042
     Dates: start: 20120109, end: 20120109
  3. ALOXI [Concomitant]
     Indication: PREMEDICATION
     Dosage: 1 DF, SINGLE DOSE
     Route: 042
     Dates: start: 20120109, end: 20120109
  4. DEXAMETASONE KRKA [Concomitant]
     Indication: PREMEDICATION
     Dosage: 20 MG, 1X/DAY
     Route: 042
     Dates: start: 20120109, end: 20120109

REACTIONS (1)
  - INJECTION SITE THROMBOSIS [None]
